FAERS Safety Report 21330180 (Version 1)
Quarter: 2022Q3

REPORT INFORMATION
  Report Type: Spontaneous
  Country: US (occurrence: US)
  Receive Date: 20220913
  Receipt Date: 20220913
  Transmission Date: 20221026
  Serious: No
  Sender: FDA-Public Use
  Company Number: US-009507513-2208USA009597

PATIENT
  Age: 73 Year
  Sex: Female

DRUGS (9)
  1. KEYTRUDA [Suspect]
     Active Substance: PEMBROLIZUMAB
     Indication: Malignant melanoma stage III
     Dosage: UNK
     Dates: start: 20220711, end: 20220711
  2. KEYTRUDA [Suspect]
     Active Substance: PEMBROLIZUMAB
     Dosage: UNK
     Dates: start: 20220801, end: 20220801
  3. LEVOTHYROXINE [Concomitant]
     Active Substance: LEVOTHYROXINE
     Indication: Thyroid disorder
     Dosage: 75 MG
  4. ESTRADIOL [Concomitant]
     Active Substance: ESTRADIOL
     Dosage: ORMULATION: PATCH, TWICE WEEKLY
  5. CALCIUM [Concomitant]
     Active Substance: CALCIUM
  6. VITAMINS NOS [Concomitant]
     Active Substance: VITAMINS
     Dosage: TWICE WEEKLY
  7. CHOLECALCIFEROL [Concomitant]
     Active Substance: CHOLECALCIFEROL
     Dosage: ONCE WEEKLY
  8. CLARITIN [Concomitant]
     Active Substance: LORATADINE
  9. COLLAGEN [Concomitant]
     Active Substance: COLLAGEN
     Dosage: DAILYIN COFEE

REACTIONS (4)
  - Blood glucose decreased [Unknown]
  - Dry skin [Unknown]
  - Diarrhoea [Not Recovered/Not Resolved]
  - Pruritus [Unknown]

NARRATIVE: CASE EVENT DATE: 20220701
